FAERS Safety Report 5456734-3 (Version None)
Quarter: 2007Q3

REPORT INFORMATION
  Report Type: 
  Country: None (occurrence: None)
  Receive Date: 20070918
  Receipt Date: 20070906
  Transmission Date: 20080115
  Serious: Yes (Life-Threatening, Disabling, Other)
  Sender: FDA-Public Use
  Company Number: GB-PFIZER INC-2007075284

PATIENT
  Age: 54 Year
  Sex: Female

DRUGS (1)
  1. VARENICLINE TABLETS [Suspect]
     Route: 048
     Dates: start: 20070515, end: 20070519

REACTIONS (5)
  - CHEST DISCOMFORT [None]
  - FALL [None]
  - HEADACHE [None]
  - SOMNAMBULISM [None]
  - VOMITING [None]
